FAERS Safety Report 6148444-4 (Version None)
Quarter: 2009Q2

REPORT INFORMATION
  Report Type: 
  Country: None (occurrence: None)
  Receive Date: 20090408
  Receipt Date: 20071109
  Transmission Date: 20091009
  Serious: Yes (Hospitalization, Disabling, Other)
  Sender: FDA-Public Use
  Company Number: JP-PFIZER INC-2007095830

PATIENT

DRUGS (2)
  1. HYDROCORTISONE AND HYDROCORTISONE ACETATE AND HYDROCORTISONE CIPIONATE [Suspect]
     Indication: SECONDARY ADRENOCORTICAL INSUFFICIENCY
     Route: 048
     Dates: start: 20060225, end: 20060305
  2. THYRADIN S [Concomitant]
     Indication: HYPOPITUITARISM
     Route: 048
     Dates: start: 20060226

REACTIONS (1)
  - CENTRAL PONTINE MYELINOLYSIS [None]
